FAERS Safety Report 19071934 (Version 1)
Quarter: 2021Q1

REPORT INFORMATION
  Report Type: Spontaneous
  Country: GB (occurrence: GB)
  Receive Date: 20210330
  Receipt Date: 20210330
  Transmission Date: 20210420
  Serious: Yes (Other)
  Sender: FDA-Public Use
  Company Number: GB-SUN PHARMACEUTICAL INDUSTRIES LTD-2021RR-288349

PATIENT
  Age: 24 Year
  Sex: Female
  Weight: 61 kg

DRUGS (3)
  1. CITALOPRAM [Suspect]
     Active Substance: CITALOPRAM HYDROBROMIDE
     Indication: ILL-DEFINED DISORDER
     Dosage: 30MG, UNK
     Route: 048
     Dates: start: 201902
  2. LORATADINE. [Concomitant]
     Active Substance: LORATADINE
     Indication: ILL-DEFINED DISORDER
     Dosage: UNK
     Route: 065
  3. FLUTICASONE PROPIONATE MICRONISED [Concomitant]
     Indication: ILL-DEFINED DISORDER
     Dosage: UNK
     Route: 065

REACTIONS (1)
  - Libido decreased [Recovering/Resolving]
